FAERS Safety Report 6286783-7 (Version None)
Quarter: 2009Q3

REPORT INFORMATION
  Report Type: 
  Country: None (occurrence: None)
  Receive Date: 20090728
  Receipt Date: 20090724
  Transmission Date: 20100115
  Serious: Yes (Hospitalization)
  Sender: FDA-Public Use
  Company Number: DE-BRISTOL-MYERS SQUIBB COMPANY-14686810

PATIENT
  Age: 61 Year
  Sex: Female
  Weight: 105 kg

DRUGS (4)
  1. ENTECAVIR [Suspect]
     Indication: HEPATITIS B
     Dosage: REDUCED TO 0.5 MG/DAY
     Route: 048
     Dates: start: 20090303, end: 20090306
  2. SPIRONOLACTONE [Concomitant]
  3. TORSEMIDE [Concomitant]
  4. PROPRANOLOL HYDROCHLORIDE [Concomitant]

REACTIONS (1)
  - LACTIC ACIDOSIS [None]
